FAERS Safety Report 18502486 (Version 7)
Quarter: 2022Q3

REPORT INFORMATION
  Report Type: Spontaneous
  Country: CZ (occurrence: CZ)
  Receive Date: 20201113
  Receipt Date: 20220912
  Transmission Date: 20221027
  Serious: Yes (Hospitalization, Other)
  Sender: FDA-Public Use
  Company Number: CZ-GLAXOSMITHKLINE-CZ2020GSK241434

PATIENT
  Age: 86 Year
  Sex: Female

DRUGS (53)
  1. TRAMADOL HYDROCHLORIDE [Suspect]
     Active Substance: TRAMADOL HYDROCHLORIDE
     Indication: Product used for unknown indication
     Route: 065
  2. ZOLPIDEM TARTRATE [Suspect]
     Active Substance: ZOLPIDEM TARTRATE
     Indication: Product used for unknown indication
     Dosage: UNK
     Route: 065
  3. ZOLPIDEM TARTRATE [Suspect]
     Active Substance: ZOLPIDEM TARTRATE
     Indication: Product used for unknown indication
     Dosage: UNK
     Route: 065
  4. OXAZEPAM [Suspect]
     Active Substance: OXAZEPAM
     Indication: Product used for unknown indication
     Dosage: UNK
     Route: 065
  5. SODIUM PICOSULFATE [Suspect]
     Active Substance: SODIUM PICOSULFATE
     Indication: Constipation
     Dosage: 1 DOSAGE FORM, 1/DAY
     Route: 048
  6. PREDNISONE [Suspect]
     Active Substance: PREDNISONE
     Indication: Product used for unknown indication
     Dosage: 5 MILLIGRAM, 1/DAY
     Route: 065
  7. ELIQUIS [Suspect]
     Active Substance: APIXABAN
     Indication: Anticoagulant therapy
     Dosage: 5 MILLIGRAM, EVERY 12 HRS
     Route: 048
  8. METAMIZOLE [Suspect]
     Active Substance: METAMIZOLE
     Indication: Post herpetic neuralgia
     Dosage: 500 MILLIGRAM, 1/DAY
     Route: 065
     Dates: start: 2015
  9. ACETAMINOPHEN\CAFFEINE\PROPYPHENAZONE [Suspect]
     Active Substance: ACETAMINOPHEN\CAFFEINE\PROPYPHENAZONE
     Indication: Hypertension
     Dosage: 500 MILLIGRAM, EVERY 12 HRS
     Route: 065
  10. TELMISARTAN [Suspect]
     Active Substance: TELMISARTAN
     Indication: Product used for unknown indication
     Dosage: 1 DOSAGE FORM, 1/DAY
     Route: 048
  11. METOPROLOL SUCCINATE [Suspect]
     Active Substance: METOPROLOL SUCCINATE
     Indication: Product used for unknown indication
     Dosage: 25 MILLIGRAM, 1/DAY
     Route: 048
  12. FOLIC ACID [Suspect]
     Active Substance: FOLIC ACID
     Indication: Product used for unknown indication
     Route: 065
  13. METHOTREXATE SODIUM [Suspect]
     Active Substance: METHOTREXATE SODIUM
     Indication: Rheumatoid arthritis
     Dosage: 10 MILLIGRAM, 1/WEEK
     Route: 065
     Dates: start: 2010
  14. CONTROLOC [Suspect]
     Active Substance: PANTOPRAZOLE SODIUM
     Indication: Nausea
     Dosage: 20 MILLIGRAM, 1/DAY
     Route: 048
  15. MELOXICAM [Suspect]
     Active Substance: MELOXICAM
     Indication: Post herpetic neuralgia
     Dosage: 15 MILLIGRAM, 1/WEEK
     Route: 065
  16. MELOXICAM [Suspect]
     Active Substance: MELOXICAM
     Dosage: 1 DOSAGE FORM, 1/WEEK
     Route: 065
  17. MAGNESIUM ASPARTATE\POTASSIUM ASPARTATE [Suspect]
     Active Substance: MAGNESIUM ASPARTATE\POTASSIUM ASPARTATE
     Indication: Product used for unknown indication
     Dosage: UNK
     Route: 065
  18. SODIUM CHONDROITIN SULFATE [Suspect]
     Active Substance: SODIUM CHONDROITIN SULFATE
     Indication: Product used for unknown indication
     Dosage: 800 MILLIGRAM, 1/DAY
     Route: 065
  19. POTASSIUM ASPARTATE [Suspect]
     Active Substance: POTASSIUM ASPARTATE
     Indication: Hypertension
     Dosage: UNK
     Route: 065
  20. ROSUVASTATIN CALCIUM [Suspect]
     Active Substance: ROSUVASTATIN CALCIUM
     Indication: Product used for unknown indication
     Dosage: 20 MILLIGRAM, 1/DAY
     Route: 048
  21. METOPROLOL TARTRATE [Suspect]
     Active Substance: METOPROLOL TARTRATE
     Indication: Product used for unknown indication
     Dosage: 25 MILLIGRAM, 1/DAY
     Route: 065
  22. FENTANYL [Suspect]
     Active Substance: FENTANYL
     Indication: Post herpetic neuralgia
     Dosage: 25 MICROGRAM, 1 /72 HRS
     Route: 062
     Dates: start: 2015
  23. FENTANYL [Suspect]
     Active Substance: FENTANYL
     Indication: Pain
  24. EUTHYROX [Suspect]
     Active Substance: LEVOTHYROXINE SODIUM
     Indication: Autoimmune thyroiditis
     Dosage: 100 MICROGRAM, 1/DAY
     Route: 065
  25. MAGNESIUM ASPARTATE [Suspect]
     Active Substance: MAGNESIUM ASPARTATE
     Indication: Product used for unknown indication
     Dosage: UNK
     Route: 065
  26. NICOFURANOSE [Suspect]
     Active Substance: NICOFURANOSE
     Indication: Product used for unknown indication
     Dosage: UNK UNK, 1/DAY
     Route: 065
  27. CORDARONE [Suspect]
     Active Substance: AMIODARONE HYDROCHLORIDE
     Indication: Atrial fibrillation
     Dosage: 200 MILLIGRAM, 1/DAY
     Route: 048
  28. CAPTOPRIL [Suspect]
     Active Substance: CAPTOPRIL
     Indication: Product used for unknown indication
     Dosage: UNK
     Route: 065
  29. TRAZODONE [Suspect]
     Active Substance: TRAZODONE HYDROCHLORIDE
     Indication: Product used for unknown indication
     Dosage: UNK
     Route: 065
  30. METHOTREXATE [Suspect]
     Active Substance: METHOTREXATE
     Indication: Rheumatoid arthritis
     Dosage: 10 MILLIGRAM, 1/WEEK
     Route: 048
     Dates: start: 2010
  31. PANTOPRAZOLE [Suspect]
     Active Substance: PANTOPRAZOLE
     Indication: Product used for unknown indication
     Dosage: UNK
     Route: 065
  32. ALPRAZOLAM [Suspect]
     Active Substance: ALPRAZOLAM
     Indication: Product used for unknown indication
     Dosage: UNK
     Route: 065
  33. CONTROLOC [Suspect]
     Active Substance: PANTOPRAZOLE SODIUM
     Indication: Nausea
     Dosage: UNK
     Route: 065
  34. HYDROCHLOROTHIAZIDE\TELMISARTAN [Suspect]
     Active Substance: HYDROCHLOROTHIAZIDE\TELMISARTAN
     Indication: Product used for unknown indication
     Dosage: 1 DOSAGE FORM, 1/DAY
     Route: 065
  35. NICOFURANOSE [Suspect]
     Active Substance: NICOFURANOSE
     Indication: Encephalopathy
     Dosage: UNK UNK, 1/DAY
     Route: 048
  36. OMEPRAZOLE [Suspect]
     Active Substance: OMEPRAZOLE
     Indication: Product used for unknown indication
     Dosage: UNK
     Route: 065
  37. RAMIPRIL [Suspect]
     Active Substance: RAMIPRIL
     Indication: Product used for unknown indication
     Dosage: UNK
     Route: 065
  38. DONEPEZIL HYDROCHLORIDE [Suspect]
     Active Substance: DONEPEZIL HYDROCHLORIDE
     Indication: Product used for unknown indication
     Dosage: UNK
     Route: 065
  39. MELOXICAM [Suspect]
     Active Substance: MELOXICAM
     Indication: Post herpetic neuralgia
     Dosage: UNK
     Route: 065
  40. MELOXICAM [Suspect]
     Active Substance: MELOXICAM
     Indication: Pain
     Dosage: 15 MG
     Route: 065
     Dates: start: 2015
  41. PREDNISONE [Suspect]
     Active Substance: PREDNISONE
     Indication: Steroid therapy
     Dosage: 5 MILLIGRAM, 1/DAY
     Route: 065
  42. AMLODIPINE BESYLATE [Suspect]
     Active Substance: AMLODIPINE BESYLATE
     Indication: Hypertension
     Dosage: 5 MILLIGRAM, 1/DAY
     Route: 065
  43. TELMISARTAN [Suspect]
     Active Substance: TELMISARTAN
     Indication: Hypertension
     Dosage: UNK
     Route: 065
  44. CHONDROITIN SULFATE (BOVINE) [Suspect]
     Active Substance: CHONDROITIN SULFATE (BOVINE)
     Indication: Rheumatoid arthritis
     Dosage: UNK
     Route: 065
  45. CALCIUM\CHOLECALCIFEROL [Suspect]
     Active Substance: CALCIUM\CHOLECALCIFEROL
     Indication: Calcium deficiency
     Dosage: UNK, 1/DAY
     Route: 065
  46. NOVALGIN (METAMIZOLE SODIUM) [Suspect]
     Active Substance: METAMIZOLE SODIUM
     Indication: Post herpetic neuralgia
     Dosage: 500 MILLIGRAM, 2/DAY
     Route: 065
  47. NOVALGIN (METAMIZOLE SODIUM) [Suspect]
     Active Substance: METAMIZOLE SODIUM
     Indication: Hypertension
  48. FENTANYL [Suspect]
     Active Substance: FENTANYL
     Indication: Product used for unknown indication
     Route: 065
  49. ACETAMINOPHEN [Suspect]
     Active Substance: ACETAMINOPHEN
  50. ACETAMINOPHEN [Suspect]
     Active Substance: ACETAMINOPHEN
     Indication: Product used for unknown indication
     Route: 065
  51. PANADOL [Suspect]
     Active Substance: ACETAMINOPHEN
     Indication: Pain
     Dosage: 1.5 DOSAGE FORM, 4/DAY
     Route: 065
     Dates: start: 2015
  52. GUAIFENESIN [Suspect]
     Active Substance: GUAIFENESIN
     Indication: Product used for unknown indication
     Route: 065
  53. PREGABALIN [Concomitant]
     Active Substance: PREGABALIN
     Indication: Post herpetic neuralgia
     Dosage: UNK
     Route: 065

REACTIONS (44)
  - Drug abuse [Unknown]
  - Hypertension [Recovering/Resolving]
  - Intentional product misuse [Unknown]
  - Liver function test increased [Recovered/Resolved]
  - Restlessness [Recovered/Resolved]
  - Dehydration [Recovered/Resolved]
  - Mobility decreased [Recovered/Resolved]
  - Atrial fibrillation [Recovered/Resolved]
  - Liver function test abnormal [Recovered/Resolved]
  - Overdose [Recovered/Resolved]
  - Delirium [Recovered/Resolved]
  - Apathy [Recovered/Resolved]
  - Prescription drug used without a prescription [Unknown]
  - Listless [Recovering/Resolving]
  - Discomfort [Recovered/Resolved]
  - Bedridden [Recovered/Resolved]
  - Nausea [Recovered/Resolved]
  - Vertigo [Recovered/Resolved]
  - Reduced facial expression [Recovered/Resolved]
  - Immobile [Recovered/Resolved]
  - Anxiety [Recovered/Resolved]
  - Hypokalaemia [Recovered/Resolved]
  - Encephalopathy [Recovering/Resolving]
  - Sleep disorder [Recovering/Resolving]
  - Mood swings [Recovered/Resolved]
  - Head discomfort [Recovered/Resolved]
  - Affect lability [Recovered/Resolved]
  - Urinary retention [Recovered/Resolved]
  - Foreign body [Recovered/Resolved]
  - Loss of personal independence in daily activities [Recovered/Resolved]
  - Contusion [Recovered/Resolved]
  - General physical health deterioration [Recovering/Resolving]
  - Cognitive disorder [Recovered/Resolved]
  - Hyponatraemia [Recovered/Resolved]
  - Pelvic fracture [Recovered/Resolved]
  - Dizziness [Recovered/Resolved]
  - Fall [Recovering/Resolving]
  - Confusional state [Recovered/Resolved]
  - Fracture [Recovered/Resolved]
  - Incorrect dose administered [Unknown]
  - Oxygen saturation decreased [Recovered/Resolved]
  - Hypoacusis [Recovered/Resolved]
  - Poor quality sleep [Recovering/Resolving]
  - Medication error [Recovered/Resolved]

NARRATIVE: CASE EVENT DATE: 20180101
